FAERS Safety Report 13705195 (Version 1)
Quarter: 2017Q2

REPORT INFORMATION
  Report Type: Spontaneous
  Country: JP (occurrence: JP)
  Receive Date: 20170630
  Receipt Date: 20170630
  Transmission Date: 20170830
  Serious: Yes (Death, Life-Threatening, Other)
  Sender: FDA-Public Use
  Company Number: JP-ACCORD-053102

PATIENT
  Age: 84 Year
  Sex: Female

DRUGS (3)
  1. PENICILLAMINE [Concomitant]
     Active Substance: PENICILLAMINE
     Dates: start: 200209, end: 200506
  2. PREDNISOLONE. [Concomitant]
     Active Substance: PREDNISOLONE
     Indication: RHEUMATOID ARTHRITIS
     Dates: start: 2004
  3. METHOTREXATE. [Suspect]
     Active Substance: METHOTREXATE
     Indication: RHEUMATOID ARTHRITIS
     Dosage: 6-10 MG, DIVIDED INTO 2 OR 3 DOSES EVERY 12 HOURS
     Route: 048
     Dates: start: 2004, end: 201008

REACTIONS (2)
  - Acute myeloid leukaemia [Fatal]
  - Myelodysplastic syndrome [Fatal]

NARRATIVE: CASE EVENT DATE: 201008
